FAERS Safety Report 5324702-8 (Version None)
Quarter: 2007Q2

REPORT INFORMATION
  Report Type: 
  Country: None (occurrence: None)
  Receive Date: 20070509
  Receipt Date: 20070424
  Transmission Date: 20071010
  Serious: Yes (Other)
  Sender: FDA-Public Use
  Company Number: A-CH2007-15166

PATIENT
  Age: 58 Year
  Sex: Female

DRUGS (13)
  1. TRACLEER [Suspect]
     Indication: PULMONARY HYPERTENSION
     Dosage: SEE IMAGE
     Route: 048
     Dates: start: 20040715, end: 20040811
  2. TRACLEER [Suspect]
     Indication: PULMONARY HYPERTENSION
     Dosage: SEE IMAGE
     Route: 048
     Dates: start: 20040813, end: 20050215
  3. TRACLEER [Suspect]
     Indication: PULMONARY HYPERTENSION
     Dosage: SEE IMAGE
     Route: 048
     Dates: start: 20050216, end: 20070313
  4. LASIX [Concomitant]
  5. ESOMEPRAZOLE (ESOMEPRAZOLE) [Concomitant]
  6. ADALAT [Concomitant]
  7. ZESTRIL [Concomitant]
  8. MARCUMAR [Concomitant]
  9. IMURAN [Concomitant]
  10. LORAZEPAM [Concomitant]
  11. MEDROL [Concomitant]
  12. BACTRIM [Concomitant]
  13. ILOPROST [Concomitant]

REACTIONS (1)
  - ORGAN TRANSPLANT [None]
